FAERS Safety Report 4606561-1 (Version None)
Quarter: 2005Q2

REPORT INFORMATION
  Report Type: 
  Country: None (occurrence: None)
  Receive Date: 20050223
  Receipt Date: 20040804
  Transmission Date: 20051028
  Serious: Yes (Other)
  Sender: FDA-Public Use
  Company Number: WAES 0408USA00355

PATIENT
  Age: 76 Year
  Sex: Male

DRUGS (2)
  1. ZOCOR [Suspect]
     Indication: HYPERLIPIDAEMIA
     Dosage: PO
     Route: 048
  2. KEPPRA [Suspect]
     Dosage: 1000 MG/BID/PO
     Route: 048
     Dates: start: 20030512

REACTIONS (1)
  - PLATELET COUNT DECREASED [None]
